FAERS Safety Report 24369184 (Version 1)
Quarter: 2024Q3

REPORT INFORMATION
  Report Type: Report from Study
  Country: US (occurrence: US)
  Receive Date: 20240927
  Receipt Date: 20240927
  Transmission Date: 20241016
  Serious: No
  Sender: ROCHE
  Company Number: US-ROCHE-3440926

PATIENT
  Age: 73 Year
  Sex: Male

DRUGS (18)
  1. LUCENTIS [Suspect]
     Active Substance: RANIBIZUMAB
     Indication: Retinal oedema
     Route: 065
  2. AVASTIN [Suspect]
     Active Substance: BEVACIZUMAB
     Indication: Retinal oedema
     Route: 050
     Dates: start: 20230927
  3. HYDROCHLOROTHIAZIDE\VALSARTAN [Concomitant]
     Active Substance: HYDROCHLOROTHIAZIDE\VALSARTAN
  4. LOTEMAX [Concomitant]
     Active Substance: LOTEPREDNOL ETABONATE
  5. PREDNISOLONE ACETATE [Concomitant]
     Active Substance: PREDNISOLONE ACETATE
  6. DUTASTERIDE [Concomitant]
     Active Substance: DUTASTERIDE
  7. TIZANIDINE [Concomitant]
     Active Substance: TIZANIDINE
  8. IRON [Concomitant]
     Active Substance: IRON
  9. ALFUZOSIN [Concomitant]
     Active Substance: ALFUZOSIN
  10. AMLODIPINE [Concomitant]
     Active Substance: AMLODIPINE BESYLATE
  11. ROSUVASTATIN [Concomitant]
     Active Substance: ROSUVASTATIN\ROSUVASTATIN CALCIUM
  12. ATENOLOL [Concomitant]
     Active Substance: ATENOLOL
  13. BRILINTA [Concomitant]
     Active Substance: TICAGRELOR
  14. BIOTIN [Concomitant]
     Active Substance: BIOTIN
  15. ASPIRIN [Concomitant]
     Active Substance: ASPIRIN
  16. CLOPIDOGREL [Concomitant]
     Active Substance: CLOPIDOGREL BISULFATE
  17. TROPICAMIDE [Concomitant]
     Active Substance: TROPICAMIDE
  18. BETADINE [Concomitant]
     Active Substance: POVIDONE-IODINE

REACTIONS (2)
  - Off label use [Unknown]
  - No adverse event [Unknown]
